FAERS Safety Report 25685508 (Version 2)
Quarter: 2025Q4

REPORT INFORMATION
  Report Type: Report from Study
  Country: CA (occurrence: CA)
  Receive Date: 20250815
  Receipt Date: 20251111
  Transmission Date: 20260117
  Serious: Yes (Hospitalization)
  Sender: PFIZER
  Company Number: CA-PFIZER INC-202500163616

PATIENT
  Age: 55 Year
  Sex: Female

DRUGS (6)
  1. HADLIMA [Suspect]
     Active Substance: ADALIMUMAB-BWWD
     Indication: Hidradenitis
     Dosage: 40 MG, WEEKLY
  2. PERINDOPRIL ARGININE [Concomitant]
     Active Substance: PERINDOPRIL ARGININE
     Dosage: ARCOSYL PLUS
  3. CYANOCOBALAMIN [Concomitant]
     Active Substance: CYANOCOBALAMIN
  4. GLUCOSAMINE [Concomitant]
     Active Substance: GLUCOSAMINE
  5. KETOROLAC [Concomitant]
     Active Substance: KETOROLAC TROMETHAMINE
  6. LEFLUNOMIDE [Concomitant]
     Active Substance: LEFLUNOMIDE

REACTIONS (2)
  - Influenza [Recovered/Resolved]
  - Oxygen saturation abnormal [Recovered/Resolved]
